FAERS Safety Report 6866548-5 (Version None)
Quarter: 2010Q3

REPORT INFORMATION
  Report Type: 
  Country: None (occurrence: None)
  Receive Date: 20100722
  Receipt Date: 20100719
  Transmission Date: 20110219
  Serious: Yes (Other)
  Sender: FDA-Public Use
  Company Number: GB-PURDUE-GBR-2010-0006830

PATIENT
  Age: 56 Year
  Sex: Male

DRUGS (1)
  1. OXYCONTIN [Suspect]
     Indication: PROCEDURAL PAIN
     Dosage: 10 MG, DAILY
     Route: 048
     Dates: start: 20100628, end: 20100629

REACTIONS (4)
  - BLOOD PRESSURE DECREASED [None]
  - PRURITUS [None]
  - RASH GENERALISED [None]
  - THROAT TIGHTNESS [None]
